FAERS Safety Report 6555075-0 (Version None)
Quarter: 2010Q1

REPORT INFORMATION
  Report Type: 
  Country: None (occurrence: None)
  Receive Date: 20100126
  Receipt Date: 20100126
  Transmission Date: 20100710
  Serious: Yes (Other)
  Sender: FDA-Public Use
  Company Number: None

PATIENT
  Sex: Female
  Weight: 67.1324 kg

DRUGS (1)
  1. ARTHROTEC [Suspect]
     Indication: ARTHRITIS
     Dosage: 1 TABLET 2
     Dates: start: 20091214, end: 20100111

REACTIONS (2)
  - BLOOD PRESSURE INCREASED [None]
  - SLEEP DISORDER [None]
